FAERS Safety Report 7818993-9 (Version None)
Quarter: 2011Q4

REPORT INFORMATION
  Report Type: 
  Country: None (occurrence: None)
  Receive Date: 20111018
  Receipt Date: 20111006
  Transmission Date: 20120403
  Serious: No
  Sender: FDA-Public Use
  Company Number: US-JNJFOC-20111003960

PATIENT
  Age: 83 Year
  Sex: Female

DRUGS (1)
  1. FENTANYL [Suspect]
     Indication: ARTHRALGIA
     Route: 062
     Dates: start: 20110101

REACTIONS (2)
  - PRODUCT ADHESION ISSUE [None]
  - WRONG TECHNIQUE IN DRUG USAGE PROCESS [None]
